FAERS Safety Report 5567293-9 (Version None)
Quarter: 2007Q4

REPORT INFORMATION
  Report Type: 
  Country: None (occurrence: None)
  Receive Date: 20071219
  Receipt Date: 20070606
  Transmission Date: 20080405
  Serious: No
  Sender: FDA-Public Use
  Company Number: US-ABBOTT-07P-163-0371895-00

PATIENT
  Sex: Female
  Weight: 64.468 kg

DRUGS (7)
  1. DILAUDID [Suspect]
     Indication: NEURALGIA
     Dosage: Q 4 HRS
     Route: 048
     Dates: start: 20060901, end: 20061101
  2. DILAUDID [Suspect]
     Indication: HEADACHE
     Dosage: Q 4 HRS
     Route: 048
     Dates: start: 20061101, end: 20070101
  3. SERTRALINE [Concomitant]
     Indication: DEPRESSION
     Route: 048
     Dates: start: 20060101
  4. HYDROCODONE BITARTRATE [Concomitant]
     Indication: NEURALGIA
     Dosage: 10/500 (1-2 TABS Q 6 HOURS)
     Route: 048
     Dates: start: 20000101
  5. HYDROCODONE BITARTRATE [Concomitant]
     Indication: HEADACHE
  6. HYDROXYZINE [Concomitant]
     Indication: STOMACH DISCOMFORT
     Route: 048
     Dates: start: 20030101
  7. DIAZEPAM [Concomitant]
     Indication: DYSTONIA
     Dosage: 3-4 TABS QD
     Route: 048
     Dates: start: 20030101

REACTIONS (3)
  - DRUG INEFFECTIVE [None]
  - HEADACHE [None]
  - MIGRAINE [None]
